FAERS Safety Report 9895682 (Version 2)
Quarter: 2014Q1

REPORT INFORMATION
  Report Type: Spontaneous
  Country: US (occurrence: US)
  Receive Date: 20140213
  Receipt Date: 20140213
  Transmission Date: 20141002
  Serious: No
  Sender: FDA-Public Use
  Company Number: US-BRISTOL-MYERS SQUIBB COMPANY-18752592

PATIENT
  Age: 53 Year
  Sex: Female

DRUGS (4)
  1. ABATACEPT SUBQ INJECTION 125MG/ML [Suspect]
     Indication: RHEUMATOID ARTHRITIS
     Dosage: DOSE 2APR13?NO OF DOSES-4?LAST DOSE 24-APR-2013
     Route: 058
     Dates: start: 20130307
  2. MTX [Concomitant]
  3. PLAQUENIL [Concomitant]
  4. CYMBALTA [Concomitant]

REACTIONS (6)
  - Paraesthesia [Recovered/Resolved]
  - Lymphadenopathy [Recovered/Resolved]
  - Dizziness [Recovered/Resolved]
  - Chronic obstructive pulmonary disease [Recovered/Resolved]
  - Chills [Unknown]
  - Asthma [Recovered/Resolved]
